FAERS Safety Report 15866359 (Version 1)
Quarter: 2019Q1

REPORT INFORMATION
  Report Type: Spontaneous
  Country: US (occurrence: US)
  Receive Date: 20190102
  Receipt Date: 20190102
  Transmission Date: 20190417
  Serious: No
  Sender: FDA-Public Use
  Company Number: None

PATIENT
  Age: 56 Year
  Sex: Male

DRUGS (1)
  1. OXALIPLATIN INJ 100MG [Suspect]
     Active Substance: OXALIPLATIN
     Route: 041

REACTIONS (2)
  - Neuropathy peripheral [None]
  - Temperature intolerance [None]

NARRATIVE: CASE EVENT DATE: 20181215
